FAERS Safety Report 10303575 (Version 1)
Quarter: 2014Q3

REPORT INFORMATION
  Report Type: Spontaneous
  Country: US (occurrence: US)
  Receive Date: 20140714
  Receipt Date: 20140714
  Transmission Date: 20150326
  Serious: No
  Sender: FDA-Public Use
  Company Number: US-009507513-1407USA006075

PATIENT
  Age: 55 Year
  Sex: Female

DRUGS (6)
  1. OXYTROL FOR WOMEN [Concomitant]
     Active Substance: OXYBUTYNIN
  2. MORPHINE [Concomitant]
     Active Substance: MORPHINE
  3. ANTIMICROBIAL (UNSPECIFIED) [Concomitant]
     Active Substance: UNSPECIFIED INGREDIENT
  4. STROMECTOL [Suspect]
     Active Substance: IVERMECTIN
     Indication: ACARODERMATITIS
     Dosage: UNK
     Route: 048
     Dates: start: 20140612
  5. METHADONE HYDROCHLORIDE. [Concomitant]
     Active Substance: METHADONE HYDROCHLORIDE
  6. LYRICA [Concomitant]
     Active Substance: PREGABALIN

REACTIONS (5)
  - Alopecia [Not Recovered/Not Resolved]
  - Constipation [Not Recovered/Not Resolved]
  - Drug administration error [Unknown]
  - Infected skin ulcer [Not Recovered/Not Resolved]
  - Melaena [Not Recovered/Not Resolved]

NARRATIVE: CASE EVENT DATE: 2014
